FAERS Safety Report 4713277-X (Version None)
Quarter: 2005Q3

REPORT INFORMATION
  Report Type: 
  Country: None (occurrence: None)
  Receive Date: 20050701
  Receipt Date: 20040714
  Transmission Date: 20060218
  Serious: Yes (Hospitalization)
  Sender: FDA-Public Use
  Company Number: US-SHR-04-022491

PATIENT
  Age: 17 Year
  Sex: Female

DRUGS (7)
  1. YASMIN [Suspect]
     Indication: ENDOMETRIOSIS
     Dosage: 1 TAB(S), 1X/DAY, ORAL
     Route: 048
     Dates: start: 20030601, end: 20040101
  2. ADVAIR (FLUTICASONE PROPIONATE, SALMETEROL XINAFOATE) [Concomitant]
  3. SINGULAIR ^MERCK^ (MONTELUKAST SODIUM) [Concomitant]
  4. CLARINEX       /USA/ (DESLORATADINE) [Concomitant]
  5. NAPROXEN [Concomitant]
  6. ALBUTEROL [Concomitant]
  7. MULTIVITAMINS (PANTHENOL, RETINOL) [Concomitant]

REACTIONS (3)
  - AMENORRHOEA [None]
  - CHOLELITHIASIS [None]
  - HYPERLIPIDAEMIA [None]
